FAERS Safety Report 9880460 (Version 1)
Quarter: 2014Q1

REPORT INFORMATION
  Report Type: Spontaneous
  Country: US (occurrence: None)
  Receive Date: 20140204
  Receipt Date: 20140204
  Transmission Date: 20141002
  Serious: Yes (Death)
  Sender: FDA-Public Use
  Company Number: 20130755

PATIENT
  Age: 49 Year
  Sex: Female

DRUGS (1)
  1. INJECTAFER [Suspect]
     Indication: PRODUCT USED FOR UNKNOWN INDICATION
     Dosage: DOSE UNKNOWN

REACTIONS (1)
  - Constipation [None]
